FAERS Safety Report 15223251 (Version 1)
Quarter: 2018Q3

REPORT INFORMATION
  Report Type: Spontaneous
  Country: US (occurrence: US)
  Receive Date: 20180705
  Receipt Date: 20180705
  Transmission Date: 20181010
  Serious: Yes (Other)
  Sender: FDA-Public Use
  Company Number: None

PATIENT
  Age: 71 Year
  Sex: Male
  Weight: 74.84 kg

DRUGS (18)
  1. NEXIUM [Concomitant]
     Active Substance: ESOMEPRAZOLE MAGNESIUM
  2. FOLIC ACID. [Concomitant]
     Active Substance: FOLIC ACID
  3. TIKOSYN [Concomitant]
     Active Substance: DOFETILIDE
  4. BYSTOLIC [Concomitant]
     Active Substance: NEBIVOLOL HYDROCHLORIDE
  5. METHOTREXATE. [Concomitant]
     Active Substance: METHOTREXATE
  6. NIACIN. [Concomitant]
     Active Substance: NIACIN
  7. BIOTIN [Concomitant]
     Active Substance: BIOTIN
  8. VITAMIN B COMPLEX [Concomitant]
     Active Substance: CYANOCOBALAMIN\DEXPANTHENOL\NIACINAMIDE\PYRIDOXINE HYDROCHLORIDE\RIBOFLAVIN 5^-PHOSPHATE SODIUM\THIAMINE HYDROCHLORIDE\VITAMIN B COMPLEX
  9. LISINOPRIL. [Concomitant]
     Active Substance: LISINOPRIL
  10. SPIRONOLACTONE. [Suspect]
     Active Substance: SPIRONOLACTONE
     Dosage: ?          QUANTITY:1 DF DOSAGE FORM;?
     Route: 048
     Dates: start: 20171205, end: 20171226
  11. ZYRTEC [Concomitant]
     Active Substance: CETIRIZINE HYDROCHLORIDE
  12. ATORVASTATIN [Concomitant]
     Active Substance: ATORVASTATIN
  13. FOLIC ACID. [Concomitant]
     Active Substance: FOLIC ACID
  14. VITAMIN D3 [Concomitant]
     Active Substance: CHOLECALCIFEROL
  15. ASPIRIN. [Concomitant]
     Active Substance: ASPIRIN
  16. WARFARIN [Concomitant]
     Active Substance: WARFARIN
  17. SPIRIVA [Concomitant]
     Active Substance: TIOTROPIUM BROMIDE MONOHYDRATE
  18. B?COMPLEX W/VITAMIN B?12 [Concomitant]

REACTIONS (8)
  - Chills [None]
  - Blood potassium abnormal [None]
  - Pruritus generalised [None]
  - Chest pain [None]
  - Feeling abnormal [None]
  - Skin wrinkling [None]
  - Product substitution issue [None]
  - Skin burning sensation [None]

NARRATIVE: CASE EVENT DATE: 20171211
